FAERS Safety Report 16995243 (Version 1)
Quarter: 2019Q4

REPORT INFORMATION
  Report Type: Report from Study
  Country: AU (occurrence: AU)
  Receive Date: 20191105
  Receipt Date: 20191105
  Transmission Date: 20200122
  Serious: Yes (Other)
  Sender: FDA-Public Use
  Company Number: PHHY2016AU031736

PATIENT
  Age: 50 Year
  Sex: Female

DRUGS (2)
  1. TAMOXIFEN [Concomitant]
     Active Substance: TAMOXIFEN
     Indication: PRODUCT USED FOR UNKNOWN INDICATION
     Dosage: UNK
     Route: 065
     Dates: start: 2016
  2. GILENYA [Suspect]
     Active Substance: FINGOLIMOD HYDROCHLORIDE
     Indication: MULTIPLE SCLEROSIS
     Dosage: 0.5 MG, QD
     Route: 048
     Dates: start: 20141210

REACTIONS (15)
  - Breast cancer [Not Recovered/Not Resolved]
  - Human papilloma virus test positive [Unknown]
  - Deep vein thrombosis [Recovered/Resolved]
  - Memory impairment [Unknown]
  - Fall [Unknown]
  - Disinhibition [Unknown]
  - Smear cervix abnormal [Unknown]
  - Joint injury [Unknown]
  - Disturbance in attention [Unknown]
  - Arthralgia [Unknown]
  - Impulsive behaviour [Unknown]
  - Varicose vein [Unknown]
  - Streptococcal infection [Unknown]
  - Confusional state [Unknown]
  - Breast oedema [Unknown]

NARRATIVE: CASE EVENT DATE: 20160304
